FAERS Safety Report 6393534-4 (Version None)
Quarter: 2009Q4

REPORT INFORMATION
  Report Type: 
  Country: None (occurrence: None)
  Receive Date: 20091008
  Receipt Date: 20091001
  Transmission Date: 20100525
  Serious: Yes (Hospitalization, Other)
  Sender: FDA-Public Use
  Company Number: B0589437A

PATIENT
  Sex: Male

DRUGS (9)
  1. REQUIP [Suspect]
     Indication: PARKINSON'S DISEASE
     Dosage: 8MG PER DAY
     Route: 048
     Dates: start: 20090619
  2. SINEMET CR [Concomitant]
     Indication: DRUG USE FOR UNKNOWN INDICATION
     Route: 065
  3. AZILECT [Concomitant]
     Indication: DRUG USE FOR UNKNOWN INDICATION
     Dosage: 1MG PER DAY
     Route: 065
  4. EFFEXOR XR [Concomitant]
     Indication: DRUG USE FOR UNKNOWN INDICATION
     Dosage: 37.5MG PER DAY
     Route: 065
     Dates: end: 20090713
  5. EFFEXOR XR [Concomitant]
     Dosage: 75MG PER DAY
     Route: 065
  6. LEVODOPA [Concomitant]
     Route: 065
  7. CARBIDOPA [Concomitant]
     Route: 065
  8. ZOPITAN [Concomitant]
     Route: 065
  9. SINEMET [Concomitant]
     Route: 065

REACTIONS (3)
  - FATIGUE [None]
  - IMPAIRED DRIVING ABILITY [None]
  - PARALYSIS [None]
